FAERS Safety Report 9746892 (Version 5)
Quarter: 2014Q3

REPORT INFORMATION
  Report Type: Spontaneous
  Country: US (occurrence: US)
  Receive Date: 20131211
  Receipt Date: 20140711
  Transmission Date: 20150326
  Serious: Yes (Hospitalization, Other)
  Sender: FDA-Public Use
  Company Number: US-009507513-1312USA005180

PATIENT
  Sex: Female
  Weight: 79.37 kg

DRUGS (2)
  1. NUVARING [Suspect]
     Active Substance: ETHINYL ESTRADIOL\ETONOGESTREL
     Indication: MENORRHAGIA
     Dosage: UNK
     Route: 067
     Dates: start: 200611, end: 200703
  2. NUVARING [Suspect]
     Active Substance: ETHINYL ESTRADIOL\ETONOGESTREL
     Indication: MENSTRUATION IRREGULAR

REACTIONS (29)
  - Night sweats [Unknown]
  - Pneumonia [Unknown]
  - Decreased appetite [Unknown]
  - Haemorrhage intracranial [Unknown]
  - International normalised ratio increased [Recovered/Resolved]
  - Hot flush [Unknown]
  - Insomnia [Unknown]
  - Migraine [Unknown]
  - Tension headache [Unknown]
  - Pleurisy [Unknown]
  - Fatigue [Unknown]
  - Hysterectomy [Unknown]
  - Mass [Unknown]
  - Meningitis [Unknown]
  - Pulmonary embolism [Unknown]
  - Thrombosis [Unknown]
  - Rhinorrhoea [Unknown]
  - Deep vein thrombosis [Unknown]
  - Knee operation [Unknown]
  - Off label use [Unknown]
  - Micturition urgency [Unknown]
  - Dysuria [Unknown]
  - Nausea [Unknown]
  - Haemorrhage [Unknown]
  - Coagulopathy [Unknown]
  - Wrist surgery [Unknown]
  - Abdominal pain [Unknown]
  - Inappropriate schedule of drug administration [Unknown]
  - Bunion operation [Unknown]

NARRATIVE: CASE EVENT DATE: 2006
